FAERS Safety Report 15019669 (Version 3)
Quarter: 2018Q3

REPORT INFORMATION
  Report Type: Report from Study
  Country: DE (occurrence: DE)
  Receive Date: 20180618
  Receipt Date: 20180712
  Transmission Date: 20181010
  Serious: Yes (Hospitalization, Other)
  Sender: FDA-Public Use
  Company Number: DE-BRISTOL-MYERS SQUIBB COMPANY-BMS-2018-054448

PATIENT
  Age: 60 Year
  Sex: Male
  Weight: 84 kg

DRUGS (12)
  1. PAZOPANIB [Suspect]
     Active Substance: PAZOPANIB
     Indication: RENAL CELL CARCINOMA
     Dosage: 400 MG, UNK
     Route: 065
     Dates: start: 20171116
  2. TAMSULOSIN [Concomitant]
     Active Substance: TAMSULOSIN
     Indication: URINARY TRACT DISORDER
     Dosage: 0.4 MG, QD
     Route: 065
     Dates: start: 20180313
  3. CARVEDILOL. [Concomitant]
     Active Substance: CARVEDILOL
     Indication: PRE-EXISTING DISEASE
     Dosage: 50 MG, QD
     Route: 065
     Dates: start: 20180313
  4. SPIRONOLACTONE. [Concomitant]
     Active Substance: SPIRONOLACTONE
     Indication: PRE-EXISTING DISEASE
     Dosage: 25 MG, QD
     Route: 065
     Dates: start: 20180502
  5. PANTOPRAZOL                        /01263201/ [Concomitant]
     Active Substance: PANTOPRAZOLE
     Indication: PROPHYLAXIS
     Dosage: 40 MG, PRN
     Route: 065
     Dates: start: 2010
  6. TRIAMTEREN [Concomitant]
     Active Substance: TRIAMTERENE
     Indication: PRE-EXISTING DISEASE
     Dosage: 50 MG, QD
     Route: 065
     Dates: start: 20180301, end: 20180313
  7. ADVANTAN [Concomitant]
     Active Substance: METHYLPREDNISOLONE ACEPONATE
     Indication: PRODUCT USED FOR UNKNOWN INDICATION
     Dosage: 25 G, QD
     Route: 065
     Dates: start: 20180309
  8. ASPIRIN. [Concomitant]
     Active Substance: ASPIRIN
     Indication: PRE-EXISTING DISEASE
     Dosage: 100 MG, QD
     Route: 065
     Dates: start: 2003
  9. JELLIPROCT [Concomitant]
     Indication: PRODUCT USED FOR UNKNOWN INDICATION
     Dosage: 30 G, QD
     Route: 065
     Dates: start: 20180309
  10. SIMVASTATIN. [Concomitant]
     Active Substance: SIMVASTATIN
     Indication: PRE-EXISTING DISEASE
     Dosage: 20 MG, QD
     Route: 065
     Dates: start: 20180313
  11. SIMVASTATIN. [Concomitant]
     Active Substance: SIMVASTATIN
     Indication: PRODUCT USED FOR UNKNOWN INDICATION
     Dosage: 40 MG, UNK
     Route: 065
     Dates: start: 20180611
  12. NIVOLUMAB [Suspect]
     Active Substance: NIVOLUMAB
     Indication: RENAL CELL CARCINOMA
     Dosage: 240 MG, UNK
     Route: 065
     Dates: start: 20180209, end: 20180608

REACTIONS (2)
  - Gastritis [Recovered/Resolved with Sequelae]
  - Pancreatitis [Recovered/Resolved with Sequelae]

NARRATIVE: CASE EVENT DATE: 20180618
